FAERS Safety Report 5229271-9 (Version None)
Quarter: 2007Q1

REPORT INFORMATION
  Report Type: 
  Country: None (occurrence: None)
  Receive Date: 20070131
  Receipt Date: 20070127
  Transmission Date: 20070707
  Serious: Yes (Other)
  Sender: FDA-Public Use
  Company Number: 230695

PATIENT
  Age: 68 Year
  Sex: Female

DRUGS (2)
  1. AVASTIN [Suspect]
     Indication: MACULAR DEGENERATION
     Dosage: INTRAVITREAL
     Route: 050
     Dates: start: 20060807
  2. EYE DROPS NOS [Concomitant]

REACTIONS (2)
  - FACE OEDEMA [None]
  - INTRAOCULAR PRESSURE INCREASED [None]
